FAERS Safety Report 13534610 (Version 1)
Quarter: 2017Q2

REPORT INFORMATION
  Report Type: Spontaneous
  Country: US (occurrence: US)
  Receive Date: 20170511
  Receipt Date: 20170511
  Transmission Date: 20170830
  Serious: No
  Sender: FDA-Public Use
  Company Number: US-ASTRAZENECA-2017SE47320

PATIENT
  Sex: Female

DRUGS (1)
  1. CRESTOR [Suspect]
     Active Substance: ROSUVASTATIN CALCIUM
     Indication: BLOOD CHOLESTEROL INCREASED
     Dosage: GENERIC
     Route: 065

REACTIONS (6)
  - Mobility decreased [Unknown]
  - Feeling abnormal [Unknown]
  - Pain in extremity [Unknown]
  - Muscle mass [Unknown]
  - Blood cholesterol increased [Unknown]
  - Pain [Unknown]
